FAERS Safety Report 25754860 (Version 1)
Quarter: 2025Q3

REPORT INFORMATION
  Report Type: Spontaneous
  Country: US (occurrence: US)
  Receive Date: 20250903
  Receipt Date: 20250903
  Transmission Date: 20251021
  Serious: Yes (Life-Threatening, Other)
  Sender: VALIDUS
  Company Number: US-VALIDUS PHARMACEUTICALS LLC-VLDS-RB-2025-00186

PATIENT
  Sex: Female

DRUGS (8)
  1. LASIX [Suspect]
     Active Substance: FUROSEMIDE
     Indication: Fluid retention
     Route: 065
     Dates: start: 202411, end: 202501
  2. LASIX [Suspect]
     Active Substance: FUROSEMIDE
     Route: 065
     Dates: start: 20250228
  3. OXYGEN [Concomitant]
     Active Substance: OXYGEN
     Indication: Dyspnoea
     Route: 045
  4. SILDENAFIL [Concomitant]
     Active Substance: SILDENAFIL
     Indication: Product used for unknown indication
     Route: 065
  5. TADALAFIL [Concomitant]
     Active Substance: TADALAFIL
     Indication: Product used for unknown indication
     Route: 065
  6. TYVASO [Concomitant]
     Active Substance: TREPROSTINIL
     Indication: Pulmonary arterial hypertension
     Dates: start: 2024
  7. TYVASO [Concomitant]
     Active Substance: TREPROSTINIL
     Dates: start: 2024
  8. TYVASO [Concomitant]
     Active Substance: TREPROSTINIL
     Dates: start: 20241115

REACTIONS (3)
  - Pulmonary oedema [Recovering/Resolving]
  - Dyspnoea [Recovered/Resolved]
  - Treatment noncompliance [Unknown]
